FAERS Safety Report 22635265 (Version 1)
Quarter: 2023Q2

REPORT INFORMATION
  Report Type: Spontaneous
  Country: US (occurrence: US)
  Receive Date: 20230623
  Receipt Date: 20230623
  Transmission Date: 20230721
  Serious: Yes (Other)
  Sender: FDA-Public Use
  Company Number: US-PFIZER INC-US-GBT-018821

PATIENT
  Age: 58 Year
  Sex: Female

DRUGS (3)
  1. OXBRYTA [Suspect]
     Active Substance: VOXELOTOR
     Indication: Product used for unknown indication
     Dosage: 1500 MG
  2. OXBRYTA [Suspect]
     Active Substance: VOXELOTOR
     Dosage: 1 DF, 1X/DAY(1 TABLET ONCE DAILY)
  3. OXBRYTA [Suspect]
     Active Substance: VOXELOTOR
     Dosage: 500 MG, 2X/DAY
     Route: 048
     Dates: start: 202209

REACTIONS (3)
  - Sickle cell anaemia with crisis [Recovered/Resolved]
  - Vomiting [Recovering/Resolving]
  - Diarrhoea [Recovering/Resolving]
